FAERS Safety Report 6278157-X (Version None)
Quarter: 2009Q3

REPORT INFORMATION
  Report Type: 
  Country: None (occurrence: None)
  Receive Date: 20090722
  Receipt Date: 20090715
  Transmission Date: 20100115
  Serious: Yes (Other)
  Sender: FDA-Public Use
  Company Number: US-ASTRAZENECA-2009UW19793

PATIENT
  Age: 652 Month
  Sex: Male

DRUGS (3)
  1. ZOMIG [Suspect]
     Indication: MIGRAINE
     Route: 048
  2. NEXIUM [Suspect]
     Indication: GASTROOESOPHAGEAL REFLUX DISEASE
     Route: 048
     Dates: start: 20081001
  3. ACETAZOLAMIDE [Concomitant]

REACTIONS (3)
  - ARTERIOVENOUS SHUNT OPERATION [None]
  - MOTOR DYSFUNCTION [None]
  - PARALYSIS [None]
